FAERS Safety Report 7301412-9 (Version None)
Quarter: 2011Q1

REPORT INFORMATION
  Report Type: 
  Country: None (occurrence: None)
  Receive Date: 20110113
  Receipt Date: 20100929
  Transmission Date: 20110831
  Serious: No
  Sender: FDA-Public Use
  Company Number: US-001312

PATIENT
  Sex: Female
  Weight: 19.2 kg

DRUGS (1)
  1. KUVAN [Suspect]
     Indication: PHENYLKETONURIA
     Dosage: 300 MG QD ORAL
     Route: 048
     Dates: start: 20090601

REACTIONS (1)
  - ASPARTATE AMINOTRANSFERASE INCREASED [None]
